FAERS Safety Report 10098114 (Version 1)
Quarter: 2014Q2

REPORT INFORMATION
  Report Type: Spontaneous
  Country: GB (occurrence: None)
  Receive Date: 20140421
  Receipt Date: 20140421
  Transmission Date: 20141212
  Serious: Yes (Hospitalization)
  Sender: FDA-Public Use
  Company Number: B0986512A

PATIENT
  Age: 36 Year
  Sex: Female

DRUGS (1)
  1. VALACICLOVIR HYDROCHLORIDE (FORMULATION UNKNOWN) (VALACYCLOVIR HCL) [Suspect]
     Indication: HERPES ZOSTER
     Route: 048

REACTIONS (6)
  - Vasculitis [None]
  - Cerebral artery stenosis [None]
  - Lymphocytosis [None]
  - Immune reconstitution inflammatory syndrome [None]
  - Cerebral ischaemia [None]
  - Cerebral infarction [None]
